FAERS Safety Report 17982675 (Version 1)
Quarter: 2020Q3

REPORT INFORMATION
  Report Type: Spontaneous
  Country: US (occurrence: US)
  Receive Date: 20200703
  Receipt Date: 20200703
  Transmission Date: 20201103
  Serious: Yes (Hospitalization)
  Sender: FDA-Public Use
  Company Number: None

PATIENT
  Sex: Female

DRUGS (2)
  1. MYCOPHENOLATE [Suspect]
     Active Substance: MYCOPHENOLIC ACID
     Route: 048
     Dates: start: 20200523
  2. TENOFOVIR [Suspect]
     Active Substance: TENOFOVIR
     Indication: ALPHA 1 FOETOPROTEIN ABNORMAL
     Route: 048
     Dates: start: 20200523

REACTIONS (1)
  - Nasopharyngitis [None]
